FAERS Safety Report 4832515-6 (Version None)
Quarter: 2005Q4

REPORT INFORMATION
  Report Type: 
  Country: None (occurrence: None)
  Receive Date: 20051117
  Receipt Date: 20051117
  Transmission Date: 20060501
  Serious: No
  Sender: FDA-Public Use
  Company Number: None

PATIENT
  Sex: Female
  Weight: 58.9676 kg

DRUGS (3)
  1. PENICILLIN [Suspect]
     Indication: SEXUALLY TRANSMITTED DISEASE
     Dosage: ONE SHOT  ONCE/WK FOR THREE
     Dates: start: 20051108, end: 20051115
  2. PENICILLIN [Suspect]
     Indication: SYPHILIS
     Dosage: ONE SHOT  ONCE/WK FOR THREE
     Dates: start: 20051108, end: 20051115
  3. DEPO-PROVERA [Suspect]
     Indication: CONTRACEPTION
     Dosage: ONE SHOT ONCE EVERY 3 MONTH
     Dates: start: 20051115, end: 20051115

REACTIONS (2)
  - MEDICATION ERROR [None]
  - WRONG DRUG ADMINISTERED [None]
